FAERS Safety Report 23375266 (Version 5)
Quarter: 2024Q1

REPORT INFORMATION
  Report Type: Spontaneous
  Country: IT (occurrence: IT)
  Receive Date: 20240106
  Receipt Date: 20240314
  Transmission Date: 20240410
  Serious: Yes (Death, Hospitalization)
  Sender: FDA-Public Use
  Company Number: IT-ROCHE-2593522

PATIENT
  Age: 62 Year
  Sex: Female
  Weight: 110 kg

DRUGS (87)
  1. ANASTROZOLE [Suspect]
     Active Substance: ANASTROZOLE
     Indication: Breast cancer metastatic
     Dosage: 1 MG, QD
     Route: 048
     Dates: start: 20170918, end: 20190612
  2. ANASTROZOLE [Suspect]
     Active Substance: ANASTROZOLE
     Dosage: 1 MG, QD (MOST RECENT DOSE PRIOR TO AE 12/JUN/2019)
     Route: 042
  3. ARIMIDEX [Suspect]
     Active Substance: ANASTROZOLE
     Indication: Breast cancer metastatic
     Dosage: MOST RECENT DOSE PRIOR TO AE 12/JUN/2019
     Route: 048
     Dates: start: 20170918, end: 20190612
  4. CAPECITABINE [Suspect]
     Active Substance: CAPECITABINE
     Dosage: 1000 MG
     Route: 048
     Dates: start: 20200120, end: 20200611
  5. CAPECITABINE [Suspect]
     Active Substance: CAPECITABINE
     Indication: Breast cancer metastatic
     Dosage: 1500 MG (0.5 DAY) (MOST RECENT DOSE PRIOR TO THE EVENT: 09/DEC/2019)
     Route: 048
     Dates: start: 20191209, end: 20191230
  6. CAPECITABINE [Suspect]
     Active Substance: CAPECITABINE
     Dosage: MOST RECENT DOSE PRIOR TO THE EVENT: 09/DEC/2019
     Route: 048
     Dates: start: 20191209, end: 20191230
  7. CAPECITABINE [Suspect]
     Active Substance: CAPECITABINE
     Dosage: 1500 MG TWICE PER DAY
     Route: 048
     Dates: start: 20200618
  8. CAPECITABINE [Suspect]
     Active Substance: CAPECITABINE
     Dosage: MOST RECENT DOSE PRIOR TO THE EVENT: 1/SEP/2020
     Route: 048
     Dates: start: 20200901
  9. ERIBULIN [Suspect]
     Active Substance: ERIBULIN
     Indication: Product used for unknown indication
     Dosage: 1.5 MG
     Route: 041
  10. HERCEPTIN [Suspect]
     Active Substance: TRASTUZUMAB
     Dosage: MOST RECENT DOSE PRIOR TO THE EVENT: 14 MAY 2019
     Route: 041
     Dates: start: 20190514
  11. HERCEPTIN [Suspect]
     Active Substance: TRASTUZUMAB
     Dosage: 800 MG, Q4W
     Route: 041
     Dates: start: 20170620
  12. HERCEPTIN [Suspect]
     Active Substance: TRASTUZUMAB
     Dosage: MOST RECENT DOSE PRIOR TO THE EVENT: 20/JUN/2017
     Route: 041
     Dates: start: 20170303, end: 20170303
  13. HERCEPTIN [Suspect]
     Active Substance: TRASTUZUMAB
     Indication: Breast cancer metastatic
     Dosage: UNK
     Route: 065
     Dates: start: 20170330
  14. KADCYLA [Suspect]
     Active Substance: ADO-TRASTUZUMAB EMTANSINE
     Dosage: 270 MG, TIW
     Route: 041
     Dates: start: 20190904
  15. KADCYLA [Suspect]
     Active Substance: ADO-TRASTUZUMAB EMTANSINE
     Dosage: MOST RECENT DOSE PRIOR TO THE EVENT: 04/SEP/2019
     Route: 041
     Dates: start: 20190612, end: 20190703
  16. KADCYLA [Suspect]
     Active Substance: ADO-TRASTUZUMAB EMTANSINE
     Indication: Breast cancer metastatic
     Dosage: 360 MG, TIW
     Route: 041
     Dates: start: 20190724, end: 20190724
  17. KADCYLA [Suspect]
     Active Substance: ADO-TRASTUZUMAB EMTANSINE
     Dosage: 360 MG, TIW
     Route: 041
     Dates: start: 20190814, end: 20190814
  18. KADCYLA [Suspect]
     Active Substance: ADO-TRASTUZUMAB EMTANSINE
     Dosage: MOST RECENT DOSE PRIOR TO THE EVENT: 12 NOV 2019
     Route: 041
     Dates: start: 20191112
  19. LAPATINIB [Suspect]
     Active Substance: LAPATINIB
     Indication: Breast cancer metastatic
     Dosage: 1250 MG, QD (MOST RECENT DOSE PRIOR TO AE 19/JUN/2020)
     Route: 065
     Dates: start: 20191209
  20. PACLITAXEL [Suspect]
     Active Substance: PACLITAXEL
     Dosage: 1000 MG
     Route: 048
     Dates: start: 20200901
  21. PACLITAXEL [Suspect]
     Active Substance: PACLITAXEL
     Dosage: 120 MG
     Route: 042
     Dates: start: 20170420, end: 20170606
  22. PACLITAXEL [Suspect]
     Active Substance: PACLITAXEL
     Dosage: 120 MG
     Route: 042
     Dates: start: 20170620, end: 20170620
  23. PACLITAXEL [Suspect]
     Active Substance: PACLITAXEL
     Dosage: 120 MG
     Route: 042
     Dates: start: 20170627
  24. PACLITAXEL [Suspect]
     Active Substance: PACLITAXEL
     Dosage: 130 MG (MOST RECENT DOSE PRIOR TO THE EVENT: 12/SEP/2017)
     Route: 042
     Dates: start: 20170912
  25. PACLITAXEL [Suspect]
     Active Substance: PACLITAXEL
     Dosage: 1500 MG, BID
     Route: 042
     Dates: start: 20191209
  26. PACLITAXEL [Suspect]
     Active Substance: PACLITAXEL
     Indication: Breast cancer metastatic
     Dosage: 80 MG, QW, (MOST RECENT DOSE PRIOR TO THE EVENT: 27/JUN/2017)
     Route: 042
     Dates: start: 20170303, end: 20170413
  27. PACLITAXEL [Suspect]
     Active Substance: PACLITAXEL
     Dosage: 80 MG (MOST RECENTPRIOR TO THE EVENT: 24/SEP/2020
     Route: 042
     Dates: start: 20200924
  28. PERJETA [Suspect]
     Active Substance: PERTUZUMAB
     Dosage: 420 MG
     Route: 041
     Dates: start: 20170330, end: 20170606
  29. PERJETA [Suspect]
     Active Substance: PERTUZUMAB
     Dosage: MOST RECENT DOSE PRIOR TO THE EVENT: 14/MAY/2019
     Route: 041
     Dates: start: 20190514
  30. PERJETA [Suspect]
     Active Substance: PERTUZUMAB
     Dosage: 840 MG, Q4W
     Route: 041
     Dates: start: 20170620
  31. PERJETA [Suspect]
     Active Substance: PERTUZUMAB
     Indication: Breast cancer metastatic
     Dosage: MOST RECENT DOSE PRIOR TO THE EVENT: 20/JUN/2020
     Route: 041
     Dates: start: 20170303, end: 20170303
  32. PERTUZUMAB [Suspect]
     Active Substance: PERTUZUMAB
     Indication: Breast cancer metastatic
     Dosage: 840 MG, Q4W (MOST RECENT DOSE PRIOR TO THE EVENT: 20/JUN/2020)
     Route: 048
     Dates: start: 20170303, end: 20170303
  33. TRASTUZUMAB [Suspect]
     Active Substance: TRASTUZUMAB
     Indication: Breast cancer metastatic
     Dosage: 800 MG, Q4W, (MOST RECENT DOSE PRIOR TO THE EVENT: 20/JUN/2017)
     Route: 042
     Dates: start: 20170303, end: 20170303
  34. ADO-TRASTUZUMAB EMTANSINE [Suspect]
     Active Substance: ADO-TRASTUZUMAB EMTANSINE
     Indication: Breast cancer metastatic
     Dosage: 270 MG, Q3W (MOST RECENT DOSE PRIOR TO THE EVENT: 04/SEP/2019)
     Route: 065
     Dates: start: 20190612
  35. TYKERB [Suspect]
     Active Substance: LAPATINIB DITOSYLATE
     Indication: Breast cancer metastatic
     Dosage: MOST RECENT DOSE PRIOR TO AE 19/JUN/2020
     Route: 048
     Dates: start: 20191209, end: 20200619
  36. ATENOLOL [Concomitant]
     Active Substance: ATENOLOL
     Indication: Product used for unknown indication
     Dosage: UNK
     Route: 065
  37. CHLORPHENIRAMINE MALEATE [Concomitant]
     Active Substance: CHLORPHENIRAMINE MALEATE
     Indication: Product used for unknown indication
     Dosage: UNK
     Route: 065
     Dates: start: 20200924
  38. CIMETIDINE [Concomitant]
     Active Substance: CIMETIDINE
     Indication: Product used for unknown indication
     Dosage: 300 MG
     Route: 041
     Dates: start: 20200924
  39. CITALOPRAM [Concomitant]
     Active Substance: CITALOPRAM HYDROBROMIDE
     Indication: Product used for unknown indication
     Dosage: UNK
     Route: 065
  40. CITALOPRAM [Concomitant]
     Active Substance: CITALOPRAM HYDROBROMIDE
     Dosage: 20 MG, QD
     Route: 048
  41. CITALOPRAM [Concomitant]
     Active Substance: CITALOPRAM HYDROBROMIDE
     Dosage: UNK
     Route: 065
  42. DEXAMETHASONE [Concomitant]
     Active Substance: DEXAMETHASONE
     Indication: Product used for unknown indication
     Dosage: 8 MG
     Route: 041
     Dates: start: 20200924
  43. DEXAMETHASONE [Concomitant]
     Active Substance: DEXAMETHASONE
     Dosage: 8 MG
     Route: 041
     Dates: start: 20170303, end: 20171003
  44. DEXAMETHASONE [Concomitant]
     Active Substance: DEXAMETHASONE
     Dosage: 8 MG
     Route: 041
     Dates: start: 20190612, end: 20191112
  45. DEXAMETHASONE [Concomitant]
     Active Substance: DEXAMETHASONE
     Dosage: 8.000MG
     Route: 042
     Dates: start: 20170303, end: 20171003
  46. DEXAMETHASONE [Concomitant]
     Active Substance: DEXAMETHASONE
     Dosage: 8.000MG
     Route: 042
     Dates: start: 20170303, end: 20171003
  47. DEXAMETHASONE [Concomitant]
     Active Substance: DEXAMETHASONE
     Dosage: 8.000MG
     Route: 042
     Dates: start: 20170303, end: 20171003
  48. DEXAMETHASONE [Concomitant]
     Active Substance: DEXAMETHASONE
     Dosage: 8.000MG
     Route: 042
     Dates: start: 20170303, end: 20171003
  49. DEXAMETHASONE [Concomitant]
     Active Substance: DEXAMETHASONE
     Dosage: 8.000MG
     Route: 042
     Dates: start: 20190612, end: 20191112
  50. DEXAMETHASONE [Concomitant]
     Active Substance: DEXAMETHASONE
     Dosage: 8.000MG
     Route: 042
     Dates: start: 20190612, end: 20191112
  51. DEXAMETHASONE [Concomitant]
     Active Substance: DEXAMETHASONE
     Dosage: 8.000MG
     Route: 042
     Dates: start: 20190612, end: 20191112
  52. DEXAMETHASONE [Concomitant]
     Active Substance: DEXAMETHASONE
     Dosage: 8.000MG
     Route: 042
     Dates: start: 20200924
  53. DEXAMETHASONE [Concomitant]
     Active Substance: DEXAMETHASONE
     Dosage: 8.000MG
     Route: 042
     Dates: start: 20200924
  54. DEXAMETHASONE [Concomitant]
     Active Substance: DEXAMETHASONE
     Dosage: 8.000MG
     Route: 042
     Dates: start: 20200924
  55. DEXAMETHASONE [Concomitant]
     Active Substance: DEXAMETHASONE
     Dosage: 8.000MG
     Route: 042
     Dates: start: 20200924
  56. DEXAMETHASONE [Concomitant]
     Active Substance: DEXAMETHASONE
     Dosage: UNK
     Route: 065
     Dates: start: 20200924
  57. DEXAMETHASONE [Concomitant]
     Active Substance: DEXAMETHASONE
     Dosage: UNK
     Route: 065
     Dates: start: 20200924
  58. CHOLECALCIFEROL [Concomitant]
     Active Substance: CHOLECALCIFEROL
     Indication: Vitamin D deficiency
     Dosage: UNK
     Route: 065
     Dates: start: 20180320
  59. ERTAPENEM [Concomitant]
     Active Substance: ERTAPENEM
     Indication: Product used for unknown indication
     Dosage: 1 G, QD
     Route: 041
     Dates: start: 20200813, end: 20200828
  60. FENTANYL [Concomitant]
     Active Substance: FENTANYL\FENTANYL CITRATE
     Indication: Product used for unknown indication
     Dosage: UNK
     Route: 065
  61. FUROSEMIDE [Concomitant]
     Active Substance: FUROSEMIDE
     Indication: Product used for unknown indication
     Dosage: UNK
     Route: 065
     Dates: start: 20210901
  62. GLYCOPYRROLATE [Concomitant]
     Active Substance: GLYCOPYRROLATE
     Indication: Product used for unknown indication
     Dosage: UNK
     Route: 065
  63. INSULIN GLARGINE [Concomitant]
     Active Substance: INSULIN GLARGINE
     Indication: Product used for unknown indication
     Dosage: UNK
     Route: 065
  64. INSULIN GLARGINE [Concomitant]
     Active Substance: INSULIN GLARGINE
     Indication: Product used for unknown indication
     Dosage: UNK
     Route: 065
     Dates: start: 20190901
  65. INSULIN GLARGINE [Concomitant]
     Active Substance: INSULIN GLARGINE
     Dosage: ONGOING=CHECKEDUNK
     Route: 065
     Dates: start: 20190901
  66. INSULIN GLARGINE [Concomitant]
     Active Substance: INSULIN GLARGINE
     Dosage: ONGOING=CHECKEDUNK
     Route: 065
     Dates: start: 20190901
  67. INSULIN GLARGINE [Concomitant]
     Active Substance: INSULIN GLARGINE
     Dosage: ONGOING=CHECKEDUNK
     Route: 065
     Dates: start: 20190901
  68. INSULIN GLARGINE [Concomitant]
     Active Substance: INSULIN GLARGINE
     Dosage: ONGOING=CHECKEDUNK
     Route: 065
     Dates: start: 20190901
  69. INSULIN GLARGINE [Concomitant]
     Active Substance: INSULIN GLARGINE
     Dosage: ONGOING=CHECKEDUNK
     Route: 065
     Dates: start: 20190901
  70. LOSARTAN [Concomitant]
     Active Substance: LOSARTAN
     Dosage: ONGOING = CHECKED
     Route: 065
     Dates: start: 20180313
  71. LOSARTAN [Concomitant]
     Active Substance: LOSARTAN
     Indication: Hypertensive crisis
     Dosage: ONGOING = CHECKED
     Route: 065
     Dates: end: 20180312
  72. LOSARTAN [Concomitant]
     Active Substance: LOSARTAN
     Dosage: ONGOING = CHECKED
     Route: 065
     Dates: start: 20180313
  73. CALCIUM CARBONATE\CHOLECALCIFEROL [Concomitant]
     Active Substance: CALCIUM CARBONATE\CHOLECALCIFEROL
     Indication: Vitamin D deficiency
     Dosage: UNK
     Route: 065
     Dates: start: 20180320
  74. OMEPRAZOLE [Concomitant]
     Active Substance: OMEPRAZOLE
     Dosage: 40 MG, QD
     Route: 048
     Dates: start: 20191209
  75. OMEPRAZOLE [Concomitant]
     Active Substance: OMEPRAZOLE
     Indication: Product used for unknown indication
     Dosage: UNK
     Route: 065
     Dates: start: 20191209
  76. ONDANSETRON [Concomitant]
     Active Substance: ONDANSETRON
     Indication: Product used for unknown indication
     Dosage: 8 MG
     Route: 041
     Dates: start: 20200924
  77. PANTOPRAZOLE [Concomitant]
     Active Substance: PANTOPRAZOLE
     Indication: Breast cancer metastatic
     Route: 065
  78. PANTOPRAZOLE [Concomitant]
     Active Substance: PANTOPRAZOLE
     Indication: Breast cancer metastatic
     Route: 065
  79. PREDNISONE [Concomitant]
     Active Substance: PREDNISONE
     Indication: Product used for unknown indication
     Dosage: UNK
     Route: 065
  80. RANITIDINE [Concomitant]
     Active Substance: RANITIDINE
     Indication: Product used for unknown indication
     Dosage: 100 MG
     Route: 041
     Dates: start: 20180303, end: 20180912
  81. TORSEMIDE [Concomitant]
     Active Substance: TORSEMIDE
     Dosage: ONGOING = CHECKED
     Route: 048
     Dates: start: 20180313
  82. TORSEMIDE [Concomitant]
     Active Substance: TORSEMIDE
     Indication: Hypertensive crisis
     Dosage: ONGOING = CHECKED
     Route: 065
     Dates: start: 20180313
  83. ZOLEDRONIC ACID [Concomitant]
     Active Substance: ZOLEDRONIC ACID
     Indication: Product used for unknown indication
     Dosage: 4 MG
     Route: 065
     Dates: start: 20170215, end: 20170320
  84. ZOLEDRONIC ACID [Concomitant]
     Active Substance: ZOLEDRONIC ACID
     Dosage: 4 MG (EVERY 28GG)
     Route: 042
     Dates: start: 20200120
  85. ZOLEDRONIC ACID [Concomitant]
     Active Substance: ZOLEDRONIC ACID
     Dosage: ONGOING = CHECKED
     Route: 042
     Dates: start: 20170215
  86. ZOLEDRONIC ACID [Concomitant]
     Active Substance: ZOLEDRONIC ACID
     Dosage: ONGOING = CHECKED
     Route: 042
     Dates: start: 20170215
  87. ZOLEDRONIC ACID [Concomitant]
     Active Substance: ZOLEDRONIC ACID
     Dosage: ONGOING = CHECKED
     Route: 065

REACTIONS (12)
  - Cardiac failure [Fatal]
  - Hypertrophic cardiomyopathy [Recovered/Resolved]
  - Epistaxis [Recovered/Resolved]
  - Palmar-plantar erythrodysaesthesia syndrome [Recovered/Resolved]
  - Fatigue [Recovered/Resolved]
  - Thrombocytopenia [Recovered/Resolved]
  - Thrombocytopenia [Recovered/Resolved]
  - Thrombocytopenia [Recovered/Resolved]
  - Vitamin D deficiency [Recovered/Resolved]
  - Blood bilirubin increased [Recovered/Resolved]
  - Alanine aminotransferase increased [Recovered/Resolved]
  - Aspartate aminotransferase increased [Recovered/Resolved]

NARRATIVE: CASE EVENT DATE: 20180320
